FAERS Safety Report 11567762 (Version 1)
Quarter: 2015Q3

REPORT INFORMATION
  Report Type: Spontaneous
  Country: US (occurrence: US)
  Receive Date: 20150916
  Receipt Date: 20150916
  Transmission Date: 20151125
  Serious: No
  Sender: FDA-Public Use
  Company Number: US-ELI_LILLY_AND_COMPANY-US200908000182

PATIENT

DRUGS (6)
  1. VITAMIN D [Concomitant]
     Active Substance: CHOLECALCIFEROL
  2. FORTEO [Suspect]
     Active Substance: TERIPARATIDE
     Indication: SCOLIOSIS
     Dates: start: 200902, end: 2009
  3. FORTEO [Suspect]
     Active Substance: TERIPARATIDE
     Dosage: UNK, UNKNOWN
     Dates: start: 20090603
  4. CITRICAL [Concomitant]
     Active Substance: CALCIUM CITRATE
  5. VITAMINS [Concomitant]
     Active Substance: VITAMINS
  6. OSTEO BI-FLEX [Concomitant]
     Active Substance: CHONDROITIN SULFATE A\GLUCOSAMINE

REACTIONS (2)
  - Off label use [Unknown]
  - Blood calcium increased [Recovering/Resolving]

NARRATIVE: CASE EVENT DATE: 2009
